FAERS Safety Report 24548120 (Version 2)
Quarter: 2024Q4

REPORT INFORMATION
  Report Type: Spontaneous
  Country: US (occurrence: US)
  Receive Date: 20241025
  Receipt Date: 20241108
  Transmission Date: 20250114
  Serious: Yes (Hospitalization)
  Sender: RIGEL PHARMACEUTICALS
  Company Number: US-RIGEL Pharmaceuticals. INC- 20241000160

PATIENT
  Age: 46 Year
  Sex: Female
  Weight: 108.86 kg

DRUGS (5)
  1. TAVALISSE [Suspect]
     Active Substance: FOSTAMATINIB
     Indication: Autoimmune haemolytic anaemia
     Dosage: 100 MG, BID
     Route: 048
     Dates: start: 20230429
  2. AMLODIPINE/BENAZEPRIL HCL [Concomitant]
     Indication: Product used for unknown indication
     Dosage: 5/20 MG QD
  3. LEVOTHYROXINE [Concomitant]
     Active Substance: LEVOTHYROXINE
     Indication: Product used for unknown indication
     Dosage: 125MCG QD
  4. PREDNISONE [Concomitant]
     Active Substance: PREDNISONE
     Indication: Product used for unknown indication
     Dosage: 10 MG, QD
  5. VITAMIN D3 [Concomitant]
     Active Substance: CHOLECALCIFEROL
     Indication: Product used for unknown indication
     Dosage: 2000 IU QD

REACTIONS (2)
  - Intracranial aneurysm [Unknown]
  - Off label use [Unknown]

NARRATIVE: CASE EVENT DATE: 20230429
